FAERS Safety Report 6299858-3 (Version None)
Quarter: 2009Q3

REPORT INFORMATION
  Report Type: 
  Country: None (occurrence: None)
  Receive Date: 20090806
  Receipt Date: 20090729
  Transmission Date: 20100115
  Serious: No
  Sender: FDA-Public Use
  Company Number: US-B.I. PHARMACEUTICALS,INC./RIDGEFIELD-2009-BP-09037BP

PATIENT
  Sex: Female

DRUGS (13)
  1. COMBIVENT [Suspect]
     Indication: CHRONIC OBSTRUCTIVE PULMONARY DISEASE
     Dosage: 10 PUF
     Route: 055
     Dates: start: 20080701
  2. COMBIVENT [Suspect]
     Indication: EMPHYSEMA
  3. ASPIRIN [Concomitant]
     Indication: PROPHYLAXIS
  4. THEOPHYLLINE 24 [Concomitant]
     Indication: CHRONIC OBSTRUCTIVE PULMONARY DISEASE
  5. PHILLIPS MOM [Concomitant]
     Indication: CONSTIPATION
  6. D' COSAMATE [Concomitant]
     Indication: FIBROMYALGIA
  7. LEXAPRO [Concomitant]
     Indication: DEPRESSION
  8. TRAZODONE HCL [Concomitant]
     Indication: DEPRESSION
  9. TRAZODONE HCL [Concomitant]
     Indication: ANXIETY
  10. PROPOXYPHENE HCL CAP [Concomitant]
     Indication: FIBROMYALGIA
  11. XANAX [Concomitant]
     Indication: DEPRESSION
  12. ALKA SELTZER [Concomitant]
     Indication: ANALGESIA
  13. GABAPENTIN [Concomitant]
     Indication: FIBROMYALGIA

REACTIONS (7)
  - DRY SKIN [None]
  - DYSGEUSIA [None]
  - HYPOTHYROIDISM [None]
  - OROPHARYNGEAL PAIN [None]
  - PHARYNGEAL OEDEMA [None]
  - RASH [None]
  - SKIN DISORDER [None]
